FAERS Safety Report 25394818 (Version 1)
Quarter: 2025Q2

REPORT INFORMATION
  Report Type: Report from Study
  Country: US (occurrence: US)
  Receive Date: 20250604
  Receipt Date: 20250604
  Transmission Date: 20250716
  Serious: No
  Sender: SUNOVION
  Company Number: US-SMPA-2025SPA005900AA

PATIENT

DRUGS (6)
  1. ORGOVYX [Suspect]
     Active Substance: RELUGOLIX
     Indication: Prostate cancer
     Dosage: 120 MG, QD
     Route: 048
  2. BERBERINE [Concomitant]
     Active Substance: BERBERINE
     Route: 048
  3. JANUMET XR [Concomitant]
     Active Substance: METFORMIN HYDROCHLORIDE\SITAGLIPTIN PHOSPHATE
     Route: 048
  4. OMEGA-3 ACIDS [Concomitant]
     Active Substance: OMEGA-3 FATTY ACIDS
     Route: 048
  5. RYBELSUS [Concomitant]
     Active Substance: SEMAGLUTIDE
     Route: 048
  6. ZINC [Concomitant]
     Active Substance: ZINC
     Route: 048

REACTIONS (3)
  - Libido decreased [Unknown]
  - Hot flush [Unknown]
  - Product dose omission issue [Unknown]
